FAERS Safety Report 4533970-1 (Version None)
Quarter: 2004Q4

REPORT INFORMATION
  Report Type: 
  Country: None (occurrence: None)
  Receive Date: 20041221
  Receipt Date: 20041221
  Transmission Date: 20050328
  Serious: Yes (Disabling)
  Sender: FDA-Public Use
  Company Number: None

PATIENT
  Age: 84 Year
  Sex: Female
  Weight: 79.3795 kg

DRUGS (1)
  1. MOBIC [Suspect]
     Indication: ARTHRITIS
     Dosage: TOOK 1 TABLET A DAY
     Dates: start: 20041203

REACTIONS (6)
  - BALANCE DISORDER [None]
  - DIZZINESS [None]
  - DYSSTASIA [None]
  - PHARMACEUTICAL PRODUCT COMPLAINT [None]
  - VOMITING [None]
  - WALKING AID USER [None]
